FAERS Safety Report 4932342-5 (Version None)
Quarter: 2006Q1

REPORT INFORMATION
  Report Type: 
  Country: None (occurrence: None)
  Receive Date: 20060228
  Receipt Date: 20060215
  Transmission Date: 20060701
  Serious: Yes (Other)
  Sender: FDA-Public Use
  Company Number: 2005038583

PATIENT
  Sex: Female

DRUGS (5)
  1. DEPO-PROVERA [Suspect]
     Indication: CONTRACEPTION
     Dosage: SEE IMAGE
     Dates: start: 20040701, end: 20040701
  2. DEPO-PROVERA [Suspect]
     Indication: CONTRACEPTION
     Dosage: SEE IMAGE
     Dates: start: 20041201, end: 20041201
  3. DEPO-PROVERA [Suspect]
     Indication: CONTRACEPTION
     Dosage: SEE IMAGE
     Dates: start: 20050201, end: 20050201
  4. TINIDAZOLE/TIOCONAZOLE (TIOCONAZOLE, TINIDAZOLE) [Suspect]
     Indication: VAGINAL INFLAMMATION
     Dosage: (1 IN 1 D), TOPICAL
     Route: 061
     Dates: start: 20000101
  5. VASOPRIL (ENALAPRIL MALEATE) [Concomitant]

REACTIONS (8)
  - AMENORRHOEA [None]
  - BLOOD GLUCOSE INCREASED [None]
  - LOW DENSITY LIPOPROTEIN INCREASED [None]
  - OSTEOPENIA [None]
  - THYROIDITIS [None]
  - VAGINAL HAEMORRHAGE [None]
  - VAGINAL INFECTION [None]
  - WEIGHT INCREASED [None]
